FAERS Safety Report 25305663 (Version 3)
Quarter: 2025Q2

REPORT INFORMATION
  Report Type: Spontaneous
  Country: TR (occurrence: TR)
  Receive Date: 20250513
  Receipt Date: 20250613
  Transmission Date: 20250716
  Serious: Yes (Other)
  Sender: RANBAXY
  Company Number: TR-SUN PHARMACEUTICAL INDUSTRIES LTD-2025R1-507596

PATIENT
  Age: 10 Month
  Sex: Male
  Weight: 11.2 kg

DRUGS (1)
  1. CLOBETASOL [Suspect]
     Active Substance: CLOBETASOL
     Indication: Dermatitis diaper
     Route: 061

REACTIONS (1)
  - Adrenal insufficiency [Recovering/Resolving]
